FAERS Safety Report 23160122 (Version 1)
Quarter: 2023Q4

REPORT INFORMATION
  Report Type: Spontaneous
  Country: US (occurrence: None)
  Receive Date: 20231107
  Receipt Date: 20231107
  Transmission Date: 20240110
  Serious: No
  Sender: FDA-Public Use
  Company Number: None

PATIENT
  Age: 56 Year
  Sex: Female
  Weight: 75.75 kg

DRUGS (8)
  1. KENALOG [Suspect]
     Active Substance: TRIAMCINOLONE ACETONIDE
  2. HYDROCYCHLOROQUIN [Concomitant]
  3. FOLIC ACID [Concomitant]
     Active Substance: FOLIC ACID
  4. METHOTREXATE [Concomitant]
     Active Substance: METHOTREXATE
  5. LEVOTHYROXINE [Concomitant]
     Active Substance: LEVOTHYROXINE
  6. FLUOXETINE [Concomitant]
     Active Substance: FLUOXETINE HYDROCHLORIDE
  7. CLONAZEPAM [Concomitant]
     Active Substance: CLONAZEPAM
  8. TRAMADOL [Concomitant]
     Active Substance: TRAMADOL\TRAMADOL HYDROCHLORIDE

REACTIONS (3)
  - Cardiac discomfort [None]
  - Feeling hot [None]
  - Drug monitoring procedure not performed [None]

NARRATIVE: CASE EVENT DATE: 20230701
